FAERS Safety Report 9967822 (Version 1)
Quarter: 2014Q1

REPORT INFORMATION
  Report Type: Report from Study
  Country: US (occurrence: US)
  Receive Date: 20140306
  Receipt Date: 20140306
  Transmission Date: 20141002
  Serious: No
  Sender: FDA-Public Use
  Company Number: US-ABBVIE-13P-163-1141730-00

PATIENT
  Age: 63 Year
  Sex: Male

DRUGS (6)
  1. HUMIRA [Suspect]
     Indication: PSORIASIS
     Dates: start: 201306
  2. ETODOLAC [Concomitant]
     Indication: ARTHRITIS
     Dosage: 400 MG EVERY DAY
  3. IMITREX [Concomitant]
     Indication: MIGRAINE
     Dosage: TAKES IT AT BEGINNING OF A MIGRAINE
  4. TERAZOSIN [Concomitant]
     Indication: BENIGN PROSTATIC HYPERPLASIA
  5. ASPIRIN [Concomitant]
     Indication: PRODUCT USED FOR UNKNOWN INDICATION
     Dosage: TAKES BECUASE PHYSICIAN SAYS IT WAS A ^GOOD IDEA^
  6. OSTEO BI-FLEX [Concomitant]
     Indication: ARTHRITIS

REACTIONS (1)
  - Injection site swelling [Recovering/Resolving]
